FAERS Safety Report 8338315-7 (Version None)
Quarter: 2012Q2

REPORT INFORMATION
  Report Type: 
  Country: None (occurrence: None)
  Receive Date: 20120504
  Receipt Date: 20120424
  Transmission Date: 20120825
  Serious: Yes (Hospitalization)
  Sender: FDA-Public Use
  Company Number: US-ACTELION-A-NJ2011-53351

PATIENT

DRUGS (2)
  1. TRACLEER [Suspect]
     Indication: PULMONARY ARTERIAL HYPERTENSION
     Dosage: UNK
     Route: 048
     Dates: start: 20080730
  2. REVATIO [Concomitant]

REACTIONS (5)
  - STAPHYLOCOCCAL INFECTION [None]
  - GAIT DISTURBANCE [None]
  - BODY TEMPERATURE INCREASED [None]
  - CYSTITIS [None]
  - RHEUMATOID ARTHRITIS [None]
